FAERS Safety Report 17575770 (Version 1)
Quarter: 2020Q1

REPORT INFORMATION
  Report Type: Spontaneous
  Country: US (occurrence: US)
  Receive Date: 20200324
  Receipt Date: 20200324
  Transmission Date: 20200409
  Serious: Yes (Hospitalization, Other)
  Sender: FDA-Public Use
  Company Number: US-PFIZER INC-2020102549

PATIENT
  Age: 17 Year
  Sex: Female
  Weight: 78 kg

DRUGS (3)
  1. TESTOSTERONE CIPIONATE [Suspect]
     Active Substance: TESTOSTERONE
     Dosage: 80 MG, UNK, (44 MG/M2) INJECTION BIWEEKLY)
     Route: 030
  2. LEUPROLIDE [LEUPRORELIN] [Concomitant]
     Active Substance: LEUPROLIDE ACETATE
     Indication: GENDER DYSPHORIA
     Dosage: UNK, (EVERY 3 MONTHS)
     Route: 030
  3. TESTOSTERONE CIPIONATE [Suspect]
     Active Substance: TESTOSTERONE
     Indication: GENDER DYSPHORIA
     Dosage: 40 MG, UNK, (EVERY 2 WEEKS) ( ((25 MG/M2) BIWEEKLY 9 MONTHS))
     Route: 030

REACTIONS (4)
  - Off label use [Unknown]
  - Pulmonary embolism [Unknown]
  - Embolism venous [Unknown]
  - Product use in unapproved indication [Unknown]
